FAERS Safety Report 16507903 (Version 1)
Quarter: 2019Q3

REPORT INFORMATION
  Report Type: Report from Study
  Country: DE (occurrence: DE)
  Receive Date: 20190702
  Receipt Date: 20190702
  Transmission Date: 20191004
  Serious: Yes (Hospitalization)
  Sender: FDA-Public Use
  Company Number: DE-ROCHE-2346801

PATIENT
  Age: 69 Year
  Sex: Female
  Weight: 88 kg

DRUGS (3)
  1. AVASTIN [Suspect]
     Active Substance: BEVACIZUMAB
     Route: 065
     Dates: start: 20130528, end: 20130528
  2. AVASTIN [Suspect]
     Active Substance: BEVACIZUMAB
     Indication: BREAST CANCER
     Route: 065
     Dates: start: 20130212, end: 20130212
  3. PACLITAXEL. [Concomitant]
     Active Substance: PACLITAXEL
     Indication: BREAST CANCER
     Dosage: SUBSEQUENT DOSES WERE GIVEN ON THE FOLLOWING DATES: 19/FEB/2013, 05/MAR/2013, 12/MAR/2013, 26/MAR/20
     Route: 065
     Dates: start: 20130212

REACTIONS (3)
  - Abdominal pain upper [Recovered/Resolved]
  - Gingivitis [Recovered/Resolved]
  - Anaemia [Recovered/Resolved]

NARRATIVE: CASE EVENT DATE: 20130805
